FAERS Safety Report 19600037 (Version 1)
Quarter: 2021Q3

REPORT INFORMATION
  Report Type: Other
  Country: US (occurrence: US)
  Receive Date: 20210722
  Receipt Date: 20210722
  Transmission Date: 20211014
  Serious: Yes (Life-Threatening, Hospitalization)
  Sender: FDA-Public Use
  Company Number: US-C B FLEET CO INC-202107-US-002501

PATIENT
  Age: 72 Year
  Sex: Male

DRUGS (1)
  1. FLEET ENEMA [Suspect]
     Active Substance: SODIUM PHOSPHATE, DIBASIC\SODIUM PHOSPHATE, MONOBASIC
     Indication: CONSTIPATION
     Route: 054

REACTIONS (5)
  - Tachypnoea [Recovered/Resolved]
  - Hypophagia [Recovered/Resolved]
  - Tachycardia [Recovered/Resolved]
  - Urinary bladder rupture [Recovered/Resolved]
  - Peritonitis [Recovered/Resolved]
